FAERS Safety Report 9124294 (Version 1)
Quarter: 2013Q1

REPORT INFORMATION
  Report Type: Spontaneous
  Country: ES (occurrence: ES)
  Receive Date: 20130227
  Receipt Date: 20130227
  Transmission Date: 20140127
  Serious: Yes (Hospitalization, Other)
  Sender: FDA-Public Use
  Company Number: PHHY2013ES018273

PATIENT
  Age: 61 Year
  Sex: Male

DRUGS (9)
  1. LEPONEX [Suspect]
     Dosage: 100 MG, BID
     Route: 048
     Dates: start: 20120115, end: 20120215
  2. ENALAPRIL [Concomitant]
     Dosage: 100 MG, BID
     Route: 048
     Dates: start: 2007
  3. OMEPRAZOLE [Concomitant]
     Dosage: 20 MG, QD
     Route: 048
     Dates: start: 2010
  4. SIMVASTATIN [Concomitant]
     Dosage: 20 MG, QD
     Route: 048
  5. ADIRO [Concomitant]
     Dosage: 100 MG, QD
     Route: 048
     Dates: start: 2010
  6. AKINETON RETARD [Concomitant]
     Dosage: UNK
     Route: 048
     Dates: start: 20120115, end: 20120215
  7. ATARAX [Concomitant]
     Dosage: UNK
     Route: 048
     Dates: start: 20120115, end: 20120215
  8. MIXTARD [Concomitant]
     Dosage: 20 U/ML, QD
     Route: 058
     Dates: start: 2007
  9. RISPERDAL [Concomitant]
     Dosage: 3 MG, QD
     Route: 048
     Dates: start: 20120109, end: 20120215

REACTIONS (3)
  - Metabolic encephalopathy [Recovered/Resolved]
  - Cerebral atrophy [Unknown]
  - Transient ischaemic attack [Unknown]
